FAERS Safety Report 19105713 (Version 1)
Quarter: 2021Q2

REPORT INFORMATION
  Report Type: Spontaneous
  Country: JP (occurrence: JP)
  Receive Date: 20210408
  Receipt Date: 20210408
  Transmission Date: 20210717
  Serious: Yes (Death)
  Sender: FDA-Public Use
  Company Number: JP-ROCHE-2805055

PATIENT
  Age: 71 Year
  Sex: Female
  Weight: 68 kg

DRUGS (3)
  1. OXALIPLATIN. [Suspect]
     Active Substance: OXALIPLATIN
     Dosage: OXALIPLATIN INTRAVENOUS DRIP LIQUID 200MG
     Route: 041
     Dates: start: 20210201, end: 20210201
  2. OXALIPLATIN. [Suspect]
     Active Substance: OXALIPLATIN
     Indication: RECTAL CANCER
     Dosage: OXALIPLATIN INTRAVENOUS DRIP LIQUID 50MG
     Route: 041
     Dates: start: 20210201, end: 20210201
  3. XELODA [Suspect]
     Active Substance: CAPECITABINE
     Indication: RECTAL CANCER
     Dosage: FIVE X2
     Route: 048
     Dates: start: 20210201, end: 20210204

REACTIONS (2)
  - Circulatory collapse [Fatal]
  - Acute kidney injury [Fatal]

NARRATIVE: CASE EVENT DATE: 20210203
